FAERS Safety Report 4792364-4 (Version None)
Quarter: 2005Q4

REPORT INFORMATION
  Report Type: 
  Country: None (occurrence: None)
  Receive Date: 20051010
  Receipt Date: 20050930
  Transmission Date: 20060501
  Serious: Yes (Hospitalization)
  Sender: FDA-Public Use
  Company Number: AU-BOEHRINGER INGELHEIM PHARMACEUTICALS, INC.-2005-BP-17548AU

PATIENT
  Age: 27 Year

DRUGS (1)
  1. MOBIC [Suspect]

REACTIONS (3)
  - DUODENAL ULCER [None]
  - HAEMOGLOBIN DECREASED [None]
  - PEPTIC ULCER [None]
